FAERS Safety Report 17196328 (Version 2)
Quarter: 2020Q1

REPORT INFORMATION
  Report Type: Spontaneous
  Country: AU (occurrence: AU)
  Receive Date: 20191224
  Receipt Date: 20200326
  Transmission Date: 20200409
  Serious: Yes (Other)
  Sender: FDA-Public Use
  Company Number: AU-BRISTOL-MYERS SQUIBB COMPANY-BMS-2019-121784

PATIENT
  Age: 55 Year
  Sex: Female

DRUGS (1)
  1. ELIQUIS [Suspect]
     Active Substance: APIXABAN
     Indication: TRANSVERSE SINUS THROMBOSIS
     Dosage: 5 MILLIGRAM, BID
     Route: 065

REACTIONS (2)
  - Pulmonary embolism [Unknown]
  - Intentional product use issue [Unknown]
